FAERS Safety Report 18033079 (Version 3)
Quarter: 2021Q1

REPORT INFORMATION
  Report Type: Report from Study
  Country: US (occurrence: US)
  Receive Date: 20200716
  Receipt Date: 20210301
  Transmission Date: 20210419
  Serious: No
  Sender: FDA-Public Use
  Company Number: NVSC2020US196435

PATIENT
  Age: 66 Year
  Sex: Male

DRUGS (2)
  1. ENTRESTO [Suspect]
     Active Substance: SACUBITRIL\VALSARTAN
     Indication: PRODUCT USED FOR UNKNOWN INDICATION
     Dosage: 1 DF, BID (49/51 MG)
     Route: 048
     Dates: start: 202002
  2. ENTRESTO [Suspect]
     Active Substance: SACUBITRIL\VALSARTAN
     Dosage: 1 DF, BID (49/51 MG)
     Route: 048
     Dates: start: 20200320

REACTIONS (5)
  - Foot fracture [Unknown]
  - Sleep disorder [Unknown]
  - Bundle branch block left [Unknown]
  - Ejection fraction decreased [Unknown]
  - Asthenia [Unknown]

NARRATIVE: CASE EVENT DATE: 20200320
